FAERS Safety Report 7003372-7 (Version None)
Quarter: 2010Q3

REPORT INFORMATION
  Report Type: 
  Country: None (occurrence: None)
  Receive Date: 20100920
  Receipt Date: 20100825
  Transmission Date: 20110219
  Serious: No
  Sender: FDA-Public Use
  Company Number: US-PFIZER INC-2010107936

PATIENT
  Age: 24 Year
  Sex: Female

DRUGS (2)
  1. GEODON [Suspect]
     Indication: BIPOLAR I DISORDER
     Dosage: UNK
     Route: 048
  2. LAMICTAL [Concomitant]
     Dosage: UNK

REACTIONS (1)
  - VISION BLURRED [None]
